FAERS Safety Report 8481933-6 (Version None)
Quarter: 2012Q2

REPORT INFORMATION
  Report Type: 
  Country: None (occurrence: None)
  Receive Date: 20120626
  Receipt Date: 20120626
  Transmission Date: 20120825
  Serious: Yes (Life-Threatening)
  Sender: FDA-Public Use
  Company Number: None

PATIENT
  Sex: Female
  Weight: 58.0604 kg

DRUGS (8)
  1. VICODIN [Concomitant]
  2. FAMOTIDINE [Concomitant]
  3. AGGRENOX [Concomitant]
  4. HEPARIN SODIUM [Suspect]
     Dosage: 5000 UNITS TID SQ
     Dates: start: 20120512, end: 20120516
  5. TRAMADOL HCL [Concomitant]
  6. SPIRONOLACTONE [Concomitant]
  7. LISINOPRIL [Concomitant]
  8. LEVOTHYROXINE SODIUM [Concomitant]

REACTIONS (1)
  - INTRA-ABDOMINAL HAEMATOMA [None]
